FAERS Safety Report 24424027 (Version 1)
Quarter: 2024Q4

REPORT INFORMATION
  Report Type: Spontaneous
  Country: US (occurrence: None)
  Receive Date: 20241010
  Receipt Date: 20241010
  Transmission Date: 20250115
  Serious: Yes (Hospitalization)
  Sender: Public
  Company Number: None

PATIENT
  Sex: Female

DRUGS (5)
  1. COSENTYX [Suspect]
     Active Substance: SECUKINUMAB
     Indication: Psoriatic arthropathy
  2. OTEZLA [Suspect]
     Active Substance: APREMILAST
  3. TREMFYA [Suspect]
     Active Substance: GUSELKUMAB
  4. LEVOTHYROXINE SODIUM [Concomitant]
     Active Substance: LEVOTHYROXINE SODIUM
  5. Other Health Professional [Concomitant]

REACTIONS (6)
  - Drug effect less than expected [None]
  - Blood pressure increased [None]
  - Drug resistance [None]
  - Injection site reaction [None]
  - Injection site pruritus [None]
  - Injection site hypersensitivity [None]
